FAERS Safety Report 6263482-9 (Version None)
Quarter: 2009Q3

REPORT INFORMATION
  Report Type: 
  Country: None (occurrence: None)
  Receive Date: 20090710
  Receipt Date: 20090331
  Transmission Date: 20100115
  Serious: No
  Sender: FDA-Public Use
  Company Number: A0762525A

PATIENT
  Age: 61 Year
  Sex: Female

DRUGS (8)
  1. TYKERB [Suspect]
     Indication: BREAST CANCER
     Route: 048
     Dates: start: 20090104
  2. COREG [Concomitant]
  3. LASIX [Concomitant]
  4. POTASSIUM CHLORIDE [Concomitant]
  5. AMBIEN [Concomitant]
  6. HERCEPTIN [Concomitant]
  7. ZOMETA [Concomitant]
  8. IMODIUM [Concomitant]

REACTIONS (10)
  - ABDOMINAL PAIN UPPER [None]
  - ALOPECIA [None]
  - DIARRHOEA [None]
  - FATIGUE [None]
  - FEELING COLD [None]
  - NAIL DISCOLOURATION [None]
  - NAUSEA [None]
  - ONYCHALGIA [None]
  - PARAESTHESIA [None]
  - PYREXIA [None]
